FAERS Safety Report 6750124-9 (Version None)
Quarter: 2010Q2

REPORT INFORMATION
  Report Type: 
  Country: None (occurrence: None)
  Receive Date: 20100601
  Receipt Date: 20100520
  Transmission Date: 20101027
  Serious: No
  Sender: FDA-Public Use
  Company Number: US-B.I. PHARMACEUTICALS,INC./RIDGEFIELD-2010-BP-05726BP

PATIENT
  Age: 69 Year
  Sex: Female

DRUGS (2)
  1. MELOXICAM [Suspect]
     Dosage: 15 MG
     Route: 048
     Dates: start: 20100115
  2. SYNTHROID [Concomitant]
     Indication: HYPOTHYROIDISM

REACTIONS (1)
  - THYROID FUNCTION TEST ABNORMAL [None]
